FAERS Safety Report 18550322 (Version 6)
Quarter: 2022Q1

REPORT INFORMATION
  Report Type: Spontaneous
  Country: US (occurrence: US)
  Receive Date: 20201126
  Receipt Date: 20220126
  Transmission Date: 20220424
  Serious: No
  Sender: FDA-Public Use
  Company Number: US-PFIZER INC-2020464186

PATIENT
  Age: 62 Year
  Sex: Female
  Weight: 79.83 kg

DRUGS (3)
  1. IBRANCE [Suspect]
     Active Substance: PALBOCICLIB
     Indication: Breast cancer metastatic
     Dosage: 125 MG, CYCLIC (125MG DAILY FOR 21 DAYS; THEN 7 DAYS OFF)
     Dates: start: 201906
  2. IBRANCE [Suspect]
     Active Substance: PALBOCICLIB
     Dosage: 125 MG
     Dates: start: 20201109
  3. IBRANCE [Suspect]
     Active Substance: PALBOCICLIB
     Dosage: 125 MG, CYCLIC (125MG ONE TIME A DAY FOR 21 DAYS AND OFF FOR 7 DAYS)
     Dates: start: 202011

REACTIONS (4)
  - Oral mucosal eruption [Recovered/Resolved]
  - Drug hypersensitivity [Unknown]
  - Urinary tract infection [Not Recovered/Not Resolved]
  - Product dose omission issue [Unknown]

NARRATIVE: CASE EVENT DATE: 20200101
